FAERS Safety Report 4536964-5 (Version None)
Quarter: 2004Q4

REPORT INFORMATION
  Report Type: 
  Country: None (occurrence: None)
  Receive Date: 20041220
  Receipt Date: 20041209
  Transmission Date: 20050328
  Serious: Yes (Hospitalization)
  Sender: FDA-Public Use
  Company Number: S04-GER-08168-01

PATIENT
  Age: 79 Year
  Sex: Female

DRUGS (3)
  1. MEMANTINE HCL [Suspect]
     Indication: DEMENTIA ALZHEIMER'S TYPE
     Dosage: 15 MG QD
  2. MEMANTINE HCL [Suspect]
     Indication: DEMENTIA ALZHEIMER'S TYPE
     Dates: start: 20041001
  3. FOLIC ACID [Concomitant]

REACTIONS (6)
  - DIZZINESS [None]
  - FALL [None]
  - HALLUCINATION [None]
  - HAND FRACTURE [None]
  - LOSS OF CONSCIOUSNESS [None]
  - SKIN LACERATION [None]
